FAERS Safety Report 4465024-7 (Version None)
Quarter: 2004Q4

REPORT INFORMATION
  Report Type: 
  Country: None (occurrence: None)
  Receive Date: 20041004
  Receipt Date: 20040922
  Transmission Date: 20050328
  Serious: Yes (Hospitalization)
  Sender: FDA-Public Use
  Company Number: JP-ROCHE-381266

PATIENT
  Age: 70 Year
  Sex: Female

DRUGS (3)
  1. ROCEPHIN [Suspect]
     Route: 042
     Dates: start: 20040823, end: 20040830
  2. CHINESE HERBAL MEDICINE [Concomitant]
     Dosage: DRUG NAEM REPORTED AS SYOUSAIKOTOU.
     Route: 048
  3. URSO [Concomitant]
     Route: 048

REACTIONS (2)
  - INTERSTITIAL LUNG DISEASE [None]
  - LYMPHOCYTE STIMULATION TEST POSITIVE [None]
